FAERS Safety Report 24817362 (Version 1)
Quarter: 2025Q1

REPORT INFORMATION
  Report Type: Spontaneous
  Country: US (occurrence: US)
  Receive Date: 20250108
  Receipt Date: 20250108
  Transmission Date: 20250408
  Serious: No
  Sender: AMGEN
  Company Number: US-AMGEN-USASP2024256887

PATIENT
  Age: 69 Year
  Sex: Male

DRUGS (1)
  1. INFLIXIMAB [Suspect]
     Active Substance: INFLIXIMAB
     Indication: Hypoalbuminaemia
     Route: 040

REACTIONS (4)
  - Drug effective for unapproved indication [Unknown]
  - Malnutrition [Unknown]
  - Sarcopenia [Unknown]
  - Off label use [Unknown]
